FAERS Safety Report 9441377 (Version 2)
Quarter: 2013Q3

REPORT INFORMATION
  Report Type: Spontaneous
  Country: US (occurrence: US)
  Receive Date: 20130805
  Receipt Date: 20130820
  Transmission Date: 20140515
  Serious: No
  Sender: FDA-Public Use
  Company Number: US-TEVA-423811USA

PATIENT
  Age: 28 Year
  Sex: Female
  Weight: 59.02 kg

DRUGS (1)
  1. PLAN B ONE-STEP [Suspect]
     Indication: POST COITAL CONTRACEPTION
     Dosage: 1.5 MILLIGRAM DAILY;
     Route: 048
     Dates: start: 20130716, end: 20130716

REACTIONS (4)
  - Muscle spasms [Recovered/Resolved]
  - Menstruation irregular [Recovered/Resolved]
  - Breast pain [Recovered/Resolved]
  - Breast tenderness [Recovered/Resolved]
